FAERS Safety Report 19731848 (Version 1)
Quarter: 2021Q3

REPORT INFORMATION
  Report Type: Spontaneous
  Country: US (occurrence: US)
  Receive Date: 20210820
  Receipt Date: 20210820
  Transmission Date: 20211014
  Serious: Yes (Hospitalization)
  Sender: FDA-Public Use
  Company Number: US-TAKEDA-2021TUS051773

PATIENT
  Sex: Female
  Weight: 40 kg

DRUGS (4)
  1. GATTEX [Suspect]
     Active Substance: TEDUGLUTIDE\WATER
     Indication: SHORT-BOWEL SYNDROME
     Dosage: 2 MILLIGRAM, QD
     Route: 058
     Dates: start: 20210427
  2. GATTEX [Suspect]
     Active Substance: TEDUGLUTIDE\WATER
     Indication: SHORT-BOWEL SYNDROME
     Dosage: 2 MILLIGRAM, QD
     Route: 058
     Dates: start: 20210427
  3. GATTEX [Suspect]
     Active Substance: TEDUGLUTIDE\WATER
     Indication: SHORT-BOWEL SYNDROME
     Dosage: 2 MILLIGRAM, QD
     Route: 058
     Dates: start: 20210427
  4. GATTEX [Suspect]
     Active Substance: TEDUGLUTIDE\WATER
     Indication: SHORT-BOWEL SYNDROME
     Dosage: 2 MILLIGRAM, QD
     Route: 058
     Dates: start: 20210427

REACTIONS (2)
  - Hospitalisation [Unknown]
  - Product dose omission issue [Unknown]
